FAERS Safety Report 8594553-X (Version None)
Quarter: 2012Q3

REPORT INFORMATION
  Report Type: 
  Country: None (occurrence: None)
  Receive Date: 20120815
  Receipt Date: 20120808
  Transmission Date: 20120928
  Serious: Yes (Hospitalization)
  Sender: FDA-Public Use
  Company Number: AT-ELI_LILLY_AND_COMPANY-AT201208003090

PATIENT
  Age: 30 Year
  Sex: Female

DRUGS (5)
  1. ASPIRIN [Concomitant]
  2. DULOXETINE HYDROCHLORIDE [Suspect]
     Indication: DEPRESSION
     Dosage: 120 MG, UNK
     Route: 048
  3. LORAZEPAM [Concomitant]
  4. PANTOPRAZOLE SODIUM [Concomitant]
  5. AKINETON [Concomitant]

REACTIONS (4)
  - HOSPITALISATION [None]
  - BULIMIA NERVOSA [None]
  - ELECTROLYTE IMBALANCE [None]
  - URINARY RETENTION [None]
